FAERS Safety Report 14833514 (Version 2)
Quarter: 2018Q2

REPORT INFORMATION
  Report Type: Spontaneous
  Country: US (occurrence: US)
  Receive Date: 20180501
  Receipt Date: 20180503
  Transmission Date: 20180711
  Serious: Yes (Other)
  Sender: FDA-Public Use
  Company Number: US-PFIZER INC-2018174577

PATIENT
  Age: 74 Year
  Sex: Female
  Weight: 85.28 kg

DRUGS (1)
  1. DILANTIN [Suspect]
     Active Substance: PHENYTOIN
     Indication: SEIZURE
     Dosage: 500 MG, DAILY (ONE CAPSULE BY MOUTH AT BREAKFAST, LUNCH, DINNER AND TWO CAPSULES AT BEDTIME)
     Route: 048

REACTIONS (4)
  - Therapeutic response unexpected [Unknown]
  - Macular degeneration [Not Recovered/Not Resolved]
  - Blindness [Unknown]
  - Weight decreased [Unknown]
